FAERS Safety Report 16378170 (Version 1)
Quarter: 2019Q2

REPORT INFORMATION
  Report Type: Report from Study
  Country: US (occurrence: US)
  Receive Date: 20190531
  Receipt Date: 20190531
  Transmission Date: 20190711
  Serious: Yes (Other)
  Sender: FDA-Public Use
  Company Number: US-TEVA-821483ACC

PATIENT
  Age: 45 Year
  Sex: Female

DRUGS (6)
  1. VESICARE [Concomitant]
     Active Substance: SOLIFENACIN SUCCINATE
  2. VITAMIN D3 [Concomitant]
     Active Substance: CHOLECALCIFEROL
  3. CALCIFEROL [Concomitant]
  4. COPAXONE [Suspect]
     Active Substance: GLATIRAMER ACETATE
     Indication: MULTIPLE SCLEROSIS
     Dosage: 20 MILLIGRAM/MILLILITERS DAILY; PREFILLED SYRINGE
     Route: 058
     Dates: start: 20170727
  5. FOLIC ACID. [Concomitant]
     Active Substance: FOLIC ACID
  6. LORATADINE. [Concomitant]
     Active Substance: LORATADINE

REACTIONS (4)
  - Injection site reaction [Unknown]
  - Surgery [Unknown]
  - Hypoaesthesia [Not Recovered/Not Resolved]
  - Multiple sclerosis relapse [Not Recovered/Not Resolved]

NARRATIVE: CASE EVENT DATE: 20171024
